FAERS Safety Report 14267512 (Version 9)
Quarter: 2019Q1

REPORT INFORMATION
  Report Type: Spontaneous
  Country: US (occurrence: US)
  Receive Date: 20171211
  Receipt Date: 20190328
  Transmission Date: 20190417
  Serious: No
  Sender: FDA-Public Use
  Company Number: US-PFIZER INC-2017527560

PATIENT
  Age: 76 Year
  Sex: Female
  Weight: 65 kg

DRUGS (8)
  1. SYNTHROID [Concomitant]
     Active Substance: LEVOTHYROXINE SODIUM
     Indication: HYPOTHYROIDISM
     Dosage: 88 MG, UNK
  2. IBRANCE [Suspect]
     Active Substance: PALBOCICLIB
     Dosage: 125 MG, 1X/DAY (MORNING)
     Route: 048
  3. IBRANCE [Suspect]
     Active Substance: PALBOCICLIB
     Indication: BREAST CANCER METASTATIC
     Dosage: 125 MG, UNK
  4. LEVOTHYROXINE. [Concomitant]
     Active Substance: LEVOTHYROXINE
     Indication: HYPOTHYROIDISM
     Dosage: UNK
  5. FASLODEX [Concomitant]
     Active Substance: FULVESTRANT
     Indication: BONE CANCER
     Dosage: UNK, MONTHLY
  6. CIPRO [Concomitant]
     Active Substance: CIPROFLOXACIN HYDROCHLORIDE
     Dosage: UNK
  7. IBRANCE [Suspect]
     Active Substance: PALBOCICLIB
     Dosage: 125 MG, CYCLIC (ONCE A DAY FOR 21 DAYS THEN OFF FOR ONE WEEK)
     Route: 048
  8. IBRANCE [Suspect]
     Active Substance: PALBOCICLIB
     Dosage: 125 MG, CYCLIC (TAKE IT FOR 21 DAYS A MONTH, AT NIGHT)
     Dates: start: 201706

REACTIONS (16)
  - Neoplasm progression [Unknown]
  - Pruritus [Not Recovered/Not Resolved]
  - Decreased appetite [Recovering/Resolving]
  - Hypoacusis [Unknown]
  - Weight decreased [Unknown]
  - Dysphonia [Unknown]
  - Dermatitis contact [Recovering/Resolving]
  - Body height decreased [Unknown]
  - Rash [Not Recovered/Not Resolved]
  - Product dose omission [Unknown]
  - Asthenia [Unknown]
  - Fatigue [Recovering/Resolving]
  - Ageusia [Recovering/Resolving]
  - Bone disorder [Unknown]
  - Loss of personal independence in daily activities [Unknown]
  - Dry skin [Unknown]

NARRATIVE: CASE EVENT DATE: 2016
